FAERS Safety Report 4910113-3 (Version None)
Quarter: 2006Q1

REPORT INFORMATION
  Report Type: 
  Country: None (occurrence: None)
  Receive Date: 20060209
  Receipt Date: 20060127
  Transmission Date: 20060701
  Serious: No
  Sender: FDA-Public Use
  Company Number: 163-20785-05090276

PATIENT
  Age: 59 Year
  Sex: Male

DRUGS (3)
  1. THALOMID [Suspect]
     Indication: MULTIPLE MYELOMA
     Dosage: 100 MG QHS ORAL
     Route: 048
     Dates: start: 20050801, end: 20051226
  2. DECADRON (DEXAMETHAOSNE ) [Concomitant]
  3. ASPIRIN [Concomitant]

REACTIONS (3)
  - DYSPHONIA [None]
  - GAIT DISTURBANCE [None]
  - ROTATOR CUFF SYNDROME [None]
